FAERS Safety Report 19519984 (Version 3)
Quarter: 2021Q3

REPORT INFORMATION
  Report Type: Report from Study
  Country: CA (occurrence: CA)
  Receive Date: 20210712
  Receipt Date: 20210816
  Transmission Date: 20211014
  Serious: Yes (Death)
  Sender: FDA-Public Use
  Company Number: CA-ASTRAZENECA-2021A604078

PATIENT
  Sex: Male

DRUGS (11)
  1. ASPIRIN. [Concomitant]
     Active Substance: ASPIRIN
  2. VENTOLIN [Concomitant]
     Active Substance: ALBUTEROL SULFATE
  3. XOLAIR [Concomitant]
     Active Substance: OMALIZUMAB
  4. RAMIPRIL. [Concomitant]
     Active Substance: RAMIPRIL
  5. PREDNISONE. [Concomitant]
     Active Substance: PREDNISONE
  6. FASENRA [Suspect]
     Active Substance: BENRALIZUMAB
     Indication: ASTHMA
     Dosage: 30.0MG UNKNOWN
     Route: 058
     Dates: start: 20181211
  7. NITROGLYCERIN SPRAY [Concomitant]
     Active Substance: NITROGLYCERIN
  8. SYMBICORT [Concomitant]
     Active Substance: BUDESONIDE\FORMOTEROL FUMARATE DIHYDRATE
  9. NUCALA [Concomitant]
     Active Substance: MEPOLIZUMAB
  10. PANTALOC [Concomitant]
  11. PULMICORT TURBUHALER [Concomitant]
     Active Substance: BUDESONIDE

REACTIONS (1)
  - Multiple organ dysfunction syndrome [Fatal]
